FAERS Safety Report 23983845 (Version 5)
Quarter: 2024Q4

REPORT INFORMATION
  Report Type: Spontaneous
  Country: PL (occurrence: PL)
  Receive Date: 20240618
  Receipt Date: 20241216
  Transmission Date: 20250115
  Serious: Yes (Hospitalization, Other)
  Sender: Haleon PLC
  Company Number: PL-BELUPO-SafetyCase004048

PATIENT
  Age: 31 Year
  Sex: Male

DRUGS (43)
  1. DICLOFENAC SODIUM [Suspect]
     Active Substance: DICLOFENAC SODIUM
     Indication: Sacral pain
     Dosage: 150 MG, QD
     Route: 065
  2. DICLOFENAC SODIUM [Suspect]
     Active Substance: DICLOFENAC SODIUM
     Indication: Back pain
  3. DICLOFENAC SODIUM [Suspect]
     Active Substance: DICLOFENAC SODIUM
     Indication: Pain
  4. METOPROLOL [Concomitant]
     Active Substance: METOPROLOL
     Indication: Cardiac disorder
     Dosage: UNK
  5. METOPROLOL [Concomitant]
     Active Substance: METOPROLOL
     Indication: Cardiac disorder
     Dosage: UNK
     Route: 065
  6. FUROSEMIDE [Concomitant]
     Active Substance: FUROSEMIDE
     Indication: Cardiac disorder
     Dosage: UNK
     Route: 042
  7. FUROSEMIDE [Concomitant]
     Active Substance: FUROSEMIDE
     Indication: Cardiac disorder
     Dosage: UNK
     Route: 042
  8. RAMIPRIL [Suspect]
     Active Substance: RAMIPRIL
     Indication: Hypertension
     Dosage: 10 MG, QD
     Route: 065
  9. RAMIPRIL [Suspect]
     Active Substance: RAMIPRIL
     Indication: Sacral pain
  10. ALPRAZOLAM [Interacting]
     Active Substance: ALPRAZOLAM
     Indication: Insomnia
     Dosage: 1 MG, QD (1 MG AT BEDTIME), 1 MG HS
     Route: 065
  11. ALPRAZOLAM [Interacting]
     Active Substance: ALPRAZOLAM
     Indication: Anorgasmia
     Dosage: 1 MG, QD (PER NIGHT AT BEDTIME), 1 MG HS
     Route: 065
  12. ALPRAZOLAM [Interacting]
     Active Substance: ALPRAZOLAM
     Indication: Affective disorder
     Dosage: 1 MILLIGRAM, QD, (1 MG AT BEDTIME)
  13. ALPRAZOLAM [Interacting]
     Active Substance: ALPRAZOLAM
     Indication: Anxiety
  14. MORPHINE [Suspect]
     Active Substance: MORPHINE
     Indication: Back pain
     Dosage: 10 MG, UNKNOWN
     Route: 042
  15. MORPHINE [Suspect]
     Active Substance: MORPHINE
     Indication: Analgesic therapy
     Route: 042
  16. ACETAMINOPHEN\TRAMADOL [Suspect]
     Active Substance: ACETAMINOPHEN\TRAMADOL
     Indication: Back pain
     Dosage: UNK, QD (EVERY 1 DAY)
     Route: 042
  17. LORNOXICAM [Concomitant]
     Active Substance: LORNOXICAM
     Indication: Back pain
     Route: 048
  18. ACETAMINOPHEN\TRAMADOL [Suspect]
     Active Substance: ACETAMINOPHEN\TRAMADOL
     Indication: Sacral pain
     Dosage: 1 DF, BID (AT A DOSE OF 37.5 / 325 MG TWICE A DAY)
     Route: 042
  19. ACETAMINOPHEN\TRAMADOL [Suspect]
     Active Substance: ACETAMINOPHEN\TRAMADOL
     Indication: Back pain
  20. KETOPROFEN [Suspect]
     Active Substance: KETOPROFEN
     Indication: Analgesic therapy
     Dosage: 100 MG
     Route: 042
  21. KETOPROFEN [Suspect]
     Active Substance: KETOPROFEN
     Indication: Back pain
     Dosage: 100 MILLIGRAM
     Route: 042
  22. DICLOFENAC [Interacting]
     Active Substance: DICLOFENAC
     Indication: Sacral pain
     Dosage: 150 MG, QD
  23. SERTRALINE HYDROCHLORIDE [Interacting]
     Active Substance: SERTRALINE HYDROCHLORIDE
     Indication: Insomnia
     Dosage: 50 MG, QD (IN THE MORNING)
     Route: 065
  24. SERTRALINE HYDROCHLORIDE [Interacting]
     Active Substance: SERTRALINE HYDROCHLORIDE
     Indication: Affective disorder
  25. SERTRALINE HYDROCHLORIDE [Interacting]
     Active Substance: SERTRALINE HYDROCHLORIDE
     Indication: Depression
  26. SERTRALINE HYDROCHLORIDE [Interacting]
     Active Substance: SERTRALINE HYDROCHLORIDE
     Indication: Anxiety
  27. SERTRALINE HYDROCHLORIDE [Interacting]
     Active Substance: SERTRALINE HYDROCHLORIDE
     Indication: Back pain
  28. ATORVASTATIN CALCIUM [Interacting]
     Active Substance: ATORVASTATIN CALCIUM
     Indication: Dyslipidaemia
     Dosage: 40 MG
     Route: 065
  29. ATORVASTATIN CALCIUM [Interacting]
     Active Substance: ATORVASTATIN CALCIUM
     Indication: Dyslipidaemia
  30. TADALAFIL [Interacting]
     Active Substance: TADALAFIL
     Indication: Erectile dysfunction
     Dosage: 10 MG PRN (CUMULATIVE DOSE TO FIRST REACTION: 50 MG)
     Route: 065
  31. TADALAFIL [Interacting]
     Active Substance: TADALAFIL
     Indication: Anorgasmia
     Dosage: 10 MG, PRN; ORAL USE
     Route: 048
  32. TADALAFIL [Interacting]
     Active Substance: TADALAFIL
     Indication: Insomnia
     Dosage: 10 MILLIGRAM, AS NEEDED
     Route: 065
  33. TADALAFIL [Interacting]
     Active Substance: TADALAFIL
     Indication: Erectile dysfunction
  34. PITAVASTATIN [Concomitant]
     Active Substance: PITAVASTATIN
     Indication: Product used for unknown indication
  35. ATORVASTATIN [Interacting]
     Active Substance: ATORVASTATIN
     Indication: Dyslipidaemia
     Dosage: 40 MILLIGRAM
  36. VALPROATE SODIUM [Concomitant]
     Active Substance: VALPROATE SODIUM
     Indication: Back pain
     Route: 065
  37. BUPRENORPHINE [Concomitant]
     Active Substance: BUPRENORPHINE
     Indication: Back pain
     Dosage: TRANSDERMAL THERAPEUTIC SYSTEM (TTS) AT 17.5 UG/H (HALF A PATCH, 35 UG/H) REPLACED EVERY 72 HOURS
     Route: 062
  38. BUPRENORPHINE [Concomitant]
     Active Substance: BUPRENORPHINE
     Indication: Sleep disorder
     Dosage: TITRATED DOSE
     Route: 060
  39. MAGNESIUM SULFATE [Concomitant]
     Active Substance: MAGNESIUM SULFATE
     Indication: Back pain
     Route: 065
  40. KETAMINE [Concomitant]
     Active Substance: KETAMINE
     Indication: Back pain
     Route: 042
  41. AGOMELATINE [Concomitant]
     Active Substance: AGOMELATINE
     Indication: Depression
     Route: 065
  42. ACETAMINOPHEN\TRAMADOL [Suspect]
     Active Substance: ACETAMINOPHEN\TRAMADOL
     Indication: Back pain
     Dosage: 37.5 / 325 MG TWICE A DAY)
  43. ACETAMINOPHEN\TRAMADOL [Suspect]
     Active Substance: ACETAMINOPHEN\TRAMADOL
     Indication: Sacral pain

REACTIONS (22)
  - Erectile dysfunction [Recovering/Resolving]
  - Pain [Unknown]
  - Drug interaction [Recovered/Resolved]
  - Blood pressure increased [Unknown]
  - Back pain [Recovered/Resolved]
  - Drug ineffective [Unknown]
  - Hyperaesthesia [Recovered/Resolved]
  - Condition aggravated [Unknown]
  - Insomnia [Recovering/Resolving]
  - Drug level increased [Unknown]
  - Tachycardia [Unknown]
  - Depression [Unknown]
  - Ill-defined disorder [Unknown]
  - Anorgasmia [Recovered/Resolved]
  - Sacral pain [Recovered/Resolved]
  - Tachypnoea [Unknown]
  - Hyperaesthesia [Unknown]
  - Pain [Unknown]
  - Product use in unapproved indication [Unknown]
  - Back pain [Unknown]
  - Affective disorder [Recovering/Resolving]
  - Neuralgia [Unknown]
